FAERS Safety Report 6994162-X (Version None)
Quarter: 2010Q3

REPORT INFORMATION
  Report Type: 
  Country: None (occurrence: None)
  Receive Date: 20100917
  Receipt Date: 20100908
  Transmission Date: 20110219
  Serious: Yes (Other)
  Sender: FDA-Public Use
  Company Number: JP-WYE-H17450510

PATIENT
  Age: 70 Year
  Sex: Female
  Weight: 62.2 kg

DRUGS (3)
  1. ZOSYN [Suspect]
     Dosage: UNKNOWN
     Route: 041
  2. HANP [Concomitant]
     Dosage: UNKNOWN
     Route: 041
  3. ANCARON [Concomitant]
     Route: 041

REACTIONS (1)
  - HYPERBILIRUBINAEMIA [None]
